FAERS Safety Report 11294878 (Version 1)
Quarter: 2015Q3

REPORT INFORMATION
  Report Type: Spontaneous
  Country: US (occurrence: None)
  Receive Date: 20150722
  Receipt Date: 20150722
  Transmission Date: 20151125
  Serious: Yes (Hospitalization)
  Sender: FDA-Public Use
  Company Number: DL2015-0872

PATIENT
  Age: 27 Year
  Sex: Female

DRUGS (3)
  1. MIFEPRISTONE TABLETS, 200 MG (DANCO LABS) [Suspect]
     Active Substance: MIFEPRISTONE
     Indication: ABORTION INDUCED
     Route: 048
     Dates: start: 20140929
  2. MISOPROSTOL TABLETS, 200 MCG [Suspect]
     Active Substance: MISOPROSTOL
     Route: 002
  3. METRONIDAZOLE? [Concomitant]
     Active Substance: METRONIDAZOLE

REACTIONS (10)
  - Vaginal discharge [None]
  - Haemorrhage [None]
  - Vaginal odour [None]
  - Post abortion complication [None]
  - Abdominal pain [None]
  - Retained products of conception [None]
  - Dizziness [None]
  - Urinary tract infection [None]
  - Pain [None]
  - Endometritis [None]

NARRATIVE: CASE EVENT DATE: 20141013
